FAERS Safety Report 17269075 (Version 1)
Quarter: 2020Q1

REPORT INFORMATION
  Report Type: Spontaneous
  Country: US (occurrence: US)
  Receive Date: 20200114
  Receipt Date: 20200114
  Transmission Date: 20200409
  Serious: Yes (Hospitalization)
  Sender: FDA-Public Use
  Company Number: None

PATIENT
  Age: 19 Year
  Sex: Female

DRUGS (7)
  1. FLUCONAZOLE. [Concomitant]
     Active Substance: FLUCONAZOLE
  2. PANTOPRAZOLE [Concomitant]
     Active Substance: PANTOPRAZOLE
  3. HUMIRA [Suspect]
     Active Substance: ADALIMUMAB
     Indication: COLITIS ULCERATIVE
     Dosage: ?          OTHER FREQUENCY:EVERY 7 DAYS;?
     Route: 058
     Dates: start: 20190806
  4. GUFACIANE [Concomitant]
  5. PREDNISONE. [Concomitant]
     Active Substance: PREDNISONE
  6. SERTRALINE [Concomitant]
     Active Substance: SERTRALINE HYDROCHLORIDE
  7. SUCRALFATE. [Concomitant]
     Active Substance: SUCRALFATE

REACTIONS (2)
  - Kidney infection [None]
  - Escherichia infection [None]

NARRATIVE: CASE EVENT DATE: 20191101
